FAERS Safety Report 18007277 (Version 2)
Quarter: 2020Q3

REPORT INFORMATION
  Report Type: Spontaneous
  Country: AU (occurrence: AU)
  Receive Date: 20200710
  Receipt Date: 20200910
  Transmission Date: 20201103
  Serious: Yes (Hospitalization)
  Sender: FDA-Public Use
  Company Number: AU-VERTEX PHARMACEUTICALS-2020-014443

PATIENT
  Age: 6 Year
  Sex: Female

DRUGS (1)
  1. ORKAMBI [Suspect]
     Active Substance: IVACAFTOR\LUMACAFTOR
     Indication: CYSTIC FIBROSIS
     Dosage: UNK
     Route: 048

REACTIONS (5)
  - Pseudomonas infection [Unknown]
  - General physical health deterioration [Unknown]
  - Pulmonary function test decreased [Not Recovered/Not Resolved]
  - Mycobacterium avium complex infection [Unknown]
  - Lung disorder [Not Recovered/Not Resolved]
